FAERS Safety Report 19456578 (Version 1)
Quarter: 2021Q2

REPORT INFORMATION
  Report Type: Spontaneous
  Country: US (occurrence: US)
  Receive Date: 20210624
  Receipt Date: 20210624
  Transmission Date: 20210717
  Serious: No
  Sender: FDA-Public Use
  Company Number: US-AUROBINDO-AUR-APL-2020-036981

PATIENT
  Sex: Female

DRUGS (1)
  1. ZOLPIDEM TABLET [Suspect]
     Active Substance: ZOLPIDEM TARTRATE
     Indication: INSOMNIA
     Dosage: UNK, OVER THE PAST SEVERAL YEARS
     Route: 065

REACTIONS (3)
  - Poor quality sleep [Unknown]
  - Product substitution issue [Unknown]
  - Drug ineffective [Unknown]
